FAERS Safety Report 7118572-5 (Version None)
Quarter: 2010Q4

REPORT INFORMATION
  Report Type: 
  Country: None (occurrence: None)
  Receive Date: 20101123
  Receipt Date: 20101119
  Transmission Date: 20110411
  Serious: Yes (Death, Other)
  Sender: FDA-Public Use
  Company Number: CH-BAYER-201047514GPV

PATIENT
  Age: 80 Year
  Sex: Female

DRUGS (10)
  1. ASPIRIN [Suspect]
     Indication: MYOCARDIAL ISCHAEMIA
     Dosage: TOTAL DAILY DOSE: 100 MG
     Route: 048
     Dates: end: 20101015
  2. OLFEN [Suspect]
     Indication: PRODUCT USED FOR UNKNOWN INDICATION
     Route: 048
     Dates: start: 20100101, end: 20100929
  3. CIPRALEX [Suspect]
     Indication: PRODUCT USED FOR UNKNOWN INDICATION
     Dates: end: 20101018
  4. SORTIS [Concomitant]
     Route: 048
  5. STILNOX [Concomitant]
     Route: 048
  6. ELTROXIN [Concomitant]
     Route: 048
  7. METOPROLOL SUCCINATE [Concomitant]
     Route: 048
  8. RAMIPRIL [Concomitant]
     Route: 048
  9. NORVASC [Concomitant]
     Route: 048
  10. TOREM [Concomitant]
     Route: 048

REACTIONS (6)
  - GASTRIC ULCER HAEMORRHAGE [None]
  - GASTRIC ULCER PERFORATION [None]
  - HAEMORRHAGIC ANAEMIA [None]
  - MELAENA [None]
  - PERITONITIS [None]
  - SEPSIS [None]
